FAERS Safety Report 8114937-3 (Version None)
Quarter: 2012Q1

REPORT INFORMATION
  Report Type: 
  Country: None (occurrence: None)
  Receive Date: 20120206
  Receipt Date: 20120130
  Transmission Date: 20120608
  Serious: Yes (Hospitalization)
  Sender: FDA-Public Use
  Company Number: FR-JNJFOC-20120200090

PATIENT
  Sex: Male

DRUGS (9)
  1. CANDESARTAN CILEXETIL [Suspect]
     Indication: PRODUCT USED FOR UNKNOWN INDICATION
     Route: 048
     Dates: end: 20120101
  2. PREVISCAN (FLUINDIONE) [Concomitant]
     Route: 065
  3. PANTOPRAZOLE [Concomitant]
     Route: 065
  4. ELIGARD [Concomitant]
     Route: 065
  5. ACETAMINOPHEN [Suspect]
     Indication: PRODUCT USED FOR UNKNOWN INDICATION
     Route: 048
     Dates: end: 20120101
  6. RISPERDAL [Suspect]
     Indication: PRODUCT USED FOR UNKNOWN INDICATION
     Route: 048
     Dates: end: 20120101
  7. LASIX [Suspect]
     Indication: PRODUCT USED FOR UNKNOWN INDICATION
     Route: 048
     Dates: end: 20120101
  8. POTASSIUM CHLORIDE [Concomitant]
     Route: 065
  9. CORDARONE [Suspect]
     Indication: PRODUCT USED FOR UNKNOWN INDICATION
     Route: 048
     Dates: end: 20120101

REACTIONS (2)
  - SEPTIC SHOCK [None]
  - PANCREATITIS ACUTE [None]
